FAERS Safety Report 25131765 (Version 1)
Quarter: 2025Q1

REPORT INFORMATION
  Report Type: Spontaneous
  Country: US (occurrence: US)
  Receive Date: 20250327
  Receipt Date: 20250327
  Transmission Date: 20250409
  Serious: Yes (Other)
  Sender: ALEXION PHARMACEUTICALS
  Company Number: US-AstraZeneca-CH-00832213A

PATIENT
  Weight: 68.027 kg

DRUGS (1)
  1. FASENRA [Suspect]
     Active Substance: BENRALIZUMAB
     Indication: Migraine
     Dosage: 30 MILLIGRAM, Q8W

REACTIONS (2)
  - Syncope [Unknown]
  - Palpitations [Unknown]
